FAERS Safety Report 23465112 (Version 1)
Quarter: 2024Q1

REPORT INFORMATION
  Report Type: Spontaneous
  Country: CN (occurrence: CN)
  Receive Date: 20240201
  Receipt Date: 20240201
  Transmission Date: 20240409
  Serious: Yes (Hospitalization, Other)
  Sender: FDA-Public Use
  Company Number: None

PATIENT
  Age: 63 Year
  Sex: Male
  Weight: 85 kg

DRUGS (12)
  1. CYCLOPHOSPHAMIDE [Suspect]
     Active Substance: CYCLOPHOSPHAMIDE
     Indication: Mantle cell lymphoma stage IV
     Dosage: 1400 MG, QD, DILUTED WITH 100 ML OF 0.9 % SODIUM CHLORIDE, AS A PART OF G-CHOP CHEMOTHERAPY REGIMEN
     Route: 041
     Dates: start: 20240103, end: 20240103
  2. CYCLOPHOSPHAMIDE [Suspect]
     Active Substance: CYCLOPHOSPHAMIDE
     Indication: Neoplasm malignant
  3. SODIUM CHLORIDE [Suspect]
     Active Substance: SODIUM CHLORIDE
     Indication: Medication dilution
     Dosage: 500 ML, QD, INJECTION, USED TO DILUTE 1000 MG OF OBINUTUZUMAB
     Route: 041
     Dates: start: 20240103, end: 20240103
  4. SODIUM CHLORIDE [Suspect]
     Active Substance: SODIUM CHLORIDE
     Dosage: 100 ML, QD, INJECTION, USED TO DILUTE 1400 MG OF CYCLOPHOSPHAMIDE
     Route: 041
     Dates: start: 20240103, end: 20240103
  5. DEXTROSE [Suspect]
     Active Substance: DEXTROSE\DEXTROSE MONOHYDRATE
     Indication: Medication dilution
     Dosage: 250 ML, QD, INJECTION, USED TO DILUTE 60 MG OF DOXORUBICIN LIPOSOME
     Route: 041
     Dates: start: 20240103
  6. EPIRUBICIN HYDROCHLORIDE [Suspect]
     Active Substance: EPIRUBICIN HYDROCHLORIDE
     Indication: Mantle cell lymphoma stage IV
     Dosage: 60 MG, ONE TIME IN ONE DAY
     Route: 041
     Dates: start: 20240103, end: 20240103
  7. EPIRUBICIN HYDROCHLORIDE [Suspect]
     Active Substance: EPIRUBICIN HYDROCHLORIDE
     Indication: Neoplasm malignant
  8. OBINUTUZUMAB [Suspect]
     Active Substance: OBINUTUZUMAB
     Indication: Mantle cell lymphoma stage IV
     Dosage: 1000 MG, QD, DILUTED WITH 500 ML OF 0.9 % SODIUM CHLORIDE, AS A PART OF G-CHOP CHEMOTHERAPY REGIMEN,
     Route: 041
     Dates: start: 20240103, end: 20240103
  9. OBINUTUZUMAB [Suspect]
     Active Substance: OBINUTUZUMAB
     Indication: Neoplasm malignant
  10. DOXORUBICIN HYDROCHLORIDE [Suspect]
     Active Substance: DOXORUBICIN HYDROCHLORIDE
     Indication: Mantle cell lymphoma stage IV
     Dosage: 60 MG, QD, DILUTED WITH 250 ML OF 5 % GLUCOSE, AS A PART OF G-CHOP CHEMOTHERAPY REGIMEN
     Route: 041
     Dates: start: 20240103
  11. DEXAMETHASONE [Suspect]
     Active Substance: DEXAMETHASONE
     Indication: Mantle cell lymphoma stage IV
     Dosage: 20 MG, QD, D1-D5, AS A PART OF G-CHOP CHEMOTHERAPY REGIMEN
     Route: 048
     Dates: start: 20240103, end: 20240107
  12. VINCRISTINE [Suspect]
     Active Substance: VINCRISTINE
     Indication: Mantle cell lymphoma stage IV
     Dosage: UNK, AS A PART OF G-CHOP CHEMOTHERAPY REGIMEN
     Route: 065
     Dates: start: 20240103

REACTIONS (5)
  - Myelosuppression [Recovering/Resolving]
  - Infection [Recovering/Resolving]
  - Agranulocytosis [Unknown]
  - Pyrexia [Recovered/Resolved]
  - Anaemia [Unknown]

NARRATIVE: CASE EVENT DATE: 20240108
